FAERS Safety Report 24162930 (Version 1)
Quarter: 2024Q3

REPORT INFORMATION
  Report Type: Spontaneous
  Country: CN (occurrence: CN)
  Receive Date: 20240801
  Receipt Date: 20240801
  Transmission Date: 20241017
  Serious: Yes (Disabling, Other)
  Sender: PFIZER
  Company Number: CN-PFIZER INC-PV202400098842

PATIENT
  Age: 64 Year
  Sex: Male
  Weight: 65 kg

DRUGS (11)
  1. CYTARABINE [Suspect]
     Active Substance: CYTARABINE
     Indication: Mantle cell lymphoma stage IV
     Dosage: 5.300 G, 2X/DAY
     Route: 041
     Dates: start: 20240708, end: 20240709
  2. METHOTREXATE SODIUM [Suspect]
     Active Substance: METHOTREXATE SODIUM
     Indication: Mantle cell lymphoma stage IV
     Dosage: 1.770 G, 1X/DAY
     Route: 041
     Dates: start: 20240706, end: 20240707
  3. RITUXIMAB [Suspect]
     Active Substance: RITUXIMAB
     Indication: Mantle cell lymphoma stage IV
     Dosage: 100.000 MG, 1X/DAY
     Route: 041
     Dates: start: 20240706, end: 20240706
  4. RITUXIMAB [Suspect]
     Active Substance: RITUXIMAB
     Dosage: 500.000 MG, 1X/DAY
     Route: 041
     Dates: start: 20240706, end: 20240706
  5. RITUXIMAB [Suspect]
     Active Substance: RITUXIMAB
     Dosage: 100.000 MG, 1X/DAY
     Route: 041
     Dates: start: 20240706, end: 20240706
  6. ORELABRUTINIB [Suspect]
     Active Substance: ORELABRUTINIB
     Indication: Mantle cell lymphoma stage IV
     Dosage: 150.000 MG, 1X/DAY
     Route: 048
     Dates: start: 20240706, end: 20240715
  7. SODIUM CHLORIDE [Concomitant]
     Active Substance: SODIUM CHLORIDE
     Indication: Mantle cell lymphoma stage IV
     Dosage: 100.000 ML, 1X/DAY
     Route: 041
     Dates: start: 20240706, end: 20240706
  8. SODIUM CHLORIDE [Concomitant]
     Active Substance: SODIUM CHLORIDE
     Dosage: 100.000 ML, 1X/DAY
     Route: 041
     Dates: start: 20240706, end: 20240706
  9. SODIUM CHLORIDE [Concomitant]
     Active Substance: SODIUM CHLORIDE
     Indication: Mantle cell lymphoma stage IV
     Dosage: 500.000 ML, 1X/DAY
     Route: 041
     Dates: start: 20240706, end: 20240706
  10. SODIUM CHLORIDE [Concomitant]
     Active Substance: SODIUM CHLORIDE
     Dosage: 500.000 ML, 2X/DAY
     Route: 041
     Dates: start: 20240708, end: 20240709
  11. DEXTROSE [Concomitant]
     Active Substance: DEXTROSE\DEXTROSE MONOHYDRATE
     Indication: Mantle cell lymphoma stage IV
     Dosage: 500.000 ML, 1X/DAY
     Route: 041
     Dates: start: 20240706, end: 20240707

REACTIONS (9)
  - Full blood count decreased [Recovering/Resolving]
  - White blood cell count decreased [Recovering/Resolving]
  - Granulocyte count decreased [Recovering/Resolving]
  - Platelet count decreased [Recovering/Resolving]
  - Myelosuppression [Recovering/Resolving]
  - Dizziness [Unknown]
  - Asthenia [Unknown]
  - Decreased appetite [Unknown]
  - Abdominal distension [Unknown]

NARRATIVE: CASE EVENT DATE: 20240709
